FAERS Safety Report 9084302 (Version 1)
Quarter: 2013Q1

REPORT INFORMATION
  Report Type: Report from Study
  Country: US (occurrence: US)
  Receive Date: 20130131
  Receipt Date: 20130131
  Transmission Date: 20140127
  Serious: No
  Sender: FDA-Public Use
  Company Number: US-ABBOTT-12P-163-0989841-00

PATIENT
  Age: 26 Year
  Sex: Female

DRUGS (5)
  1. HUMIRA [Suspect]
     Indication: SPONDYLOARTHROPATHY
     Dates: start: 201203
  2. METHOTREXATE [Concomitant]
     Indication: PRODUCT USED FOR UNKNOWN INDICATION
  3. OMEPRAZOLE [Concomitant]
     Indication: DYSPEPSIA
     Dosage: DAILY
  4. ORTHO TRI CYCLEN [Concomitant]
     Indication: PRODUCT USED FOR UNKNOWN INDICATION
  5. FOLIC ACID [Concomitant]
     Indication: PRODUCT USED FOR UNKNOWN INDICATION
     Dosage: DAILY

REACTIONS (4)
  - Fungal infection [Not Recovered/Not Resolved]
  - Arthritis [Unknown]
  - Arthralgia [Unknown]
  - Fatigue [Unknown]
